FAERS Safety Report 16429760 (Version 3)
Quarter: 2020Q2

REPORT INFORMATION
  Report Type: Spontaneous
  Country: US (occurrence: US)
  Receive Date: 20190614
  Receipt Date: 20200410
  Transmission Date: 20200713
  Serious: Yes (Other)
  Sender: FDA-Public Use
  Company Number: US-GILEAD-2019-0412935

PATIENT
  Age: 61 Year
  Sex: Male

DRUGS (37)
  1. KALETRA [Concomitant]
     Active Substance: LOPINAVIR\RITONAVIR
  2. SMZ-TMP [Concomitant]
     Active Substance: SULFAMETHOXAZOLE\TRIMETHOPRIM
  3. AZITHROMYCIN ANHYDROUS. [Concomitant]
     Active Substance: AZITHROMYCIN ANHYDROUS
  4. MYRBETRIQ [Concomitant]
     Active Substance: MIRABEGRON
  5. ABACAVIR SULFATE. [Concomitant]
     Active Substance: ABACAVIR SULFATE
  6. DESCOVY [Concomitant]
     Active Substance: EMTRICITABINE\TENOFOVIR ALAFENAMIDE FUMARATE
  7. HYDROCORT [HYDROCORTISONE ACETATE] [Concomitant]
  8. ATENOLOL. [Concomitant]
     Active Substance: ATENOLOL
  9. LISINOPRIL. [Concomitant]
     Active Substance: LISINOPRIL
  10. COMBIVIR [Concomitant]
     Active Substance: LAMIVUDINE\ZIDOVUDINE
  11. CEPHALEXIN [CEFALEXIN] [Concomitant]
     Active Substance: CEPHALEXIN
  12. HYDROCODONE BITARTRATE AND ACETAMINOPHEN [Concomitant]
     Active Substance: ACETAMINOPHEN\HYDROCODONE BITARTRATE
  13. LOSARTAN POTASSIUM. [Concomitant]
     Active Substance: LOSARTAN POTASSIUM
  14. SERTRALINE [Concomitant]
     Active Substance: SERTRALINE HYDROCHLORIDE
  15. EMTRIVA [Concomitant]
     Active Substance: EMTRICITABINE
  16. PAROXETINE. [Concomitant]
     Active Substance: PAROXETINE
  17. NIFEDIPINE. [Concomitant]
     Active Substance: NIFEDIPINE
  18. BENZONATATE. [Concomitant]
     Active Substance: BENZONATATE
  19. AMOXICILLIN. [Concomitant]
     Active Substance: AMOXICILLIN
  20. IBUPROFEN. [Concomitant]
     Active Substance: IBUPROFEN
  21. GOLYTELY [Concomitant]
     Active Substance: POLYETHYLENE GLYCOL 3350\POTASSIUM CHLORIDE\SODIUM BICARBONATE\SODIUM CHLORIDE\SODIUM SULFATE ANHYDROUS
  22. EPZICOM [Concomitant]
     Active Substance: ABACAVIR SULFATE\LAMIVUDINE
  23. VITAMIN D NOS [Concomitant]
     Active Substance: VITAMIN D NOS
  24. PRAVASTATIN. [Concomitant]
     Active Substance: PRAVASTATIN
  25. SIMVASTATIN. [Concomitant]
     Active Substance: SIMVASTATIN
  26. ZOLPIDEM [Concomitant]
     Active Substance: ZOLPIDEM TARTRATE
  27. ENOXAPARIN [Concomitant]
     Active Substance: ENOXAPARIN
  28. BYSTOLIC [Concomitant]
     Active Substance: NEBIVOLOL HYDROCHLORIDE
  29. APAP;CODEINE [Concomitant]
  30. HYDROXYZINE HCL [Concomitant]
     Active Substance: HYDROXYZINE HYDROCHLORIDE
  31. TIVICAY [Concomitant]
     Active Substance: DOLUTEGRAVIR SODIUM
  32. LEVAQUIN [Concomitant]
     Active Substance: LEVOFLOXACIN
  33. AMOXICILLIN;CLAVULANATE POTASSIUM [Concomitant]
     Active Substance: AMOXICILLIN\CLAVULANATE POTASSIUM
  34. ATRIPLA [Suspect]
     Active Substance: EFAVIRENZ\EMTRICITABINE\TENOFOVIR DISOPROXIL FUMARATE
     Indication: HIV INFECTION
     Dosage: UNK
     Route: 048
     Dates: start: 200711, end: 201406
  35. LIPITOR [Concomitant]
     Active Substance: ATORVASTATIN CALCIUM
  36. ACYCLOVIR [ACICLOVIR] [Concomitant]
     Active Substance: ACYCLOVIR
  37. GABAPENTIN. [Concomitant]
     Active Substance: GABAPENTIN

REACTIONS (11)
  - Osteopenia [Unknown]
  - Emotional distress [Not Recovered/Not Resolved]
  - Multiple fractures [Recovered/Resolved]
  - Tooth loss [Not Recovered/Not Resolved]
  - Economic problem [Not Recovered/Not Resolved]
  - Bone density decreased [Not Recovered/Not Resolved]
  - Pain [Not Recovered/Not Resolved]
  - Osteoporosis [Unknown]
  - Anhedonia [Not Recovered/Not Resolved]
  - Chronic kidney disease [Not Recovered/Not Resolved]
  - Anxiety [Not Recovered/Not Resolved]

NARRATIVE: CASE EVENT DATE: 2010
